FAERS Safety Report 9644505 (Version 2)
Quarter: 2013Q4

REPORT INFORMATION
  Report Type: Spontaneous
  Country: NL (occurrence: NL)
  Receive Date: 20131025
  Receipt Date: 20131105
  Transmission Date: 20140711
  Serious: Yes (Hospitalization)
  Sender: FDA-Public Use
  Company Number: NL-AMGEN-NLDSP2013074246

PATIENT
  Age: 48 Year
  Sex: Female

DRUGS (1)
  1. NEULASTA [Suspect]
     Indication: PROPHYLAXIS
     Dosage: 6 MG, ONE TIME DOSE
     Route: 058
     Dates: start: 20130927

REACTIONS (4)
  - Febrile neutropenia [Unknown]
  - Infection [Unknown]
  - Dehydration [Unknown]
  - Pain in extremity [Recovered/Resolved]
